FAERS Safety Report 25352584 (Version 1)
Quarter: 2025Q2

REPORT INFORMATION
  Report Type: Spontaneous
  Country: GB (occurrence: GB)
  Receive Date: 20250523
  Receipt Date: 20250523
  Transmission Date: 20250716
  Serious: Yes (Hospitalization, Other)
  Sender: MYLAN
  Company Number: None

PATIENT
  Age: 54 Year
  Sex: Female

DRUGS (5)
  1. CANDESARTAN [Suspect]
     Active Substance: CANDESARTAN
     Indication: Hypertension
  2. TIBOLONE [Concomitant]
     Active Substance: TIBOLONE
     Indication: Hormone replacement therapy
  3. PROPRANOLOL [Concomitant]
     Active Substance: PROPRANOLOL HYDROCHLORIDE
     Indication: Migraine
  4. OMEPRAZOLE [Concomitant]
     Active Substance: OMEPRAZOLE
  5. COLESEVELAM [Concomitant]
     Active Substance: COLESEVELAM
     Indication: Bile acid malabsorption

REACTIONS (1)
  - Lymphadenopathy [Recovered/Resolved]
